FAERS Safety Report 20530709 (Version 1)
Quarter: 2022Q1

REPORT INFORMATION
  Report Type: Report from Study
  Country: CA (occurrence: CA)
  Receive Date: 20220301
  Receipt Date: 20220301
  Transmission Date: 20220423
  Serious: Yes (Hospitalization)
  Sender: FDA-Public Use
  Company Number: CA-ABBVIE-22K-028-4294234-00

PATIENT
  Age: 62 Year
  Sex: Male

DRUGS (2)
  1. HUMIRA [Suspect]
     Active Substance: ADALIMUMAB
     Indication: Psoriatic arthropathy
     Route: 058
     Dates: start: 20100622
  2. HUMIRA [Suspect]
     Active Substance: ADALIMUMAB
     Route: 058

REACTIONS (13)
  - Swelling [Unknown]
  - COVID-19 [Unknown]
  - Diarrhoea [Unknown]
  - Haemorrhage [Unknown]
  - Eye pruritus [Unknown]
  - Joint swelling [Unknown]
  - Osteoarthritis [Unknown]
  - Ligament sprain [Unknown]
  - Vision blurred [Unknown]
  - Psoriasis [Unknown]
  - Peripheral swelling [Not Recovered/Not Resolved]
  - Tremor [Unknown]
  - Back pain [Unknown]

NARRATIVE: CASE EVENT DATE: 20220101
